FAERS Safety Report 7217005-8 (Version None)
Quarter: 2011Q1

REPORT INFORMATION
  Report Type: 
  Country: None (occurrence: None)
  Receive Date: 20110105
  Receipt Date: 20110105
  Transmission Date: 20110831
  Serious: Yes (Hospitalization)
  Sender: FDA-Public Use
  Company Number: None

PATIENT
  Age: 77 Year
  Sex: Female
  Weight: 48 kg

DRUGS (9)
  1. FOLIC ACID [Concomitant]
  2. VIT B6 [Concomitant]
  3. XALATAN [Concomitant]
  4. OXACARBAZEPINE [Concomitant]
  5. DECITABINE 0.2MG/KG SUB-Q [Suspect]
     Indication: MYELODYSPLASTIC SYNDROME
     Dosage: SEE SECTION 5 FOR DATES
  6. VIT D3 [Concomitant]
  7. NASONEX [Concomitant]
  8. DOCUSATE SODIUM [Concomitant]
  9. LEVOTHYROXINE SODIUM [Concomitant]

REACTIONS (16)
  - SEPSIS [None]
  - DECREASED APPETITE [None]
  - HAEMOGLOBIN DECREASED [None]
  - BLOOD SODIUM DECREASED [None]
  - NEUTROPHIL COUNT DECREASED [None]
  - FATIGUE [None]
  - LACERATION [None]
  - HYPOTHYROIDISM [None]
  - WHITE BLOOD CELL COUNT DECREASED [None]
  - BLOOD CHLORIDE DECREASED [None]
  - ASTHENIA [None]
  - HYPOPHAGIA [None]
  - DRUG DOSE OMISSION [None]
  - PLATELET COUNT DECREASED [None]
  - GAIT DISTURBANCE [None]
  - DEHYDRATION [None]
